FAERS Safety Report 25864937 (Version 1)
Quarter: 2025Q3

REPORT INFORMATION
  Report Type: Spontaneous
  Country: EU (occurrence: EU)
  Receive Date: 20250930
  Receipt Date: 20250930
  Transmission Date: 20251020
  Serious: Yes (Hospitalization)
  Sender: NOVARTIS
  Company Number: None

PATIENT
  Age: 65 Year
  Sex: Male
  Weight: 75 kg

DRUGS (2)
  1. CERTICAN [Suspect]
     Active Substance: EVEROLIMUS
     Indication: Heart transplant
     Dosage: 1 MG, Q12H
     Route: 048
     Dates: start: 20241106, end: 20250105
  2. CERTICAN [Suspect]
     Active Substance: EVEROLIMUS
     Route: 048
     Dates: start: 20250106, end: 20250206

REACTIONS (1)
  - Pulmonary embolism [Recovered/Resolved]

NARRATIVE: CASE EVENT DATE: 20250131
